FAERS Safety Report 8064877-3 (Version None)
Quarter: 2012Q1

REPORT INFORMATION
  Report Type: 
  Country: None (occurrence: None)
  Receive Date: 20120124
  Receipt Date: 20120112
  Transmission Date: 20120608
  Serious: No
  Sender: FDA-Public Use
  Company Number: US-BIOGENIDEC-2012BI001493

PATIENT
  Age: 26 Year
  Sex: Female

DRUGS (1)
  1. TYSABRI [Suspect]
     Indication: MULTIPLE SCLEROSIS
     Route: 042
     Dates: start: 20111003

REACTIONS (5)
  - GALACTORRHOEA [None]
  - HYPERPROLACTINAEMIA [None]
  - BLOOD PROLACTIN INCREASED [None]
  - CHROMATURIA [None]
  - ALOPECIA [None]
